FAERS Safety Report 14591705 (Version 1)
Quarter: 2018Q1

REPORT INFORMATION
  Report Type: Spontaneous
  Country: US (occurrence: US)
  Receive Date: 20180301
  Receipt Date: 20180301
  Transmission Date: 20180509
  Serious: Yes (Hospitalization)
  Sender: FDA-Public Use
  Company Number: None

PATIENT
  Age: 65 Year
  Sex: Male

DRUGS (11)
  1. MYFORTIC [Suspect]
     Active Substance: MYCOPHENOLATE SODIUM
     Indication: RENAL TRANSPLANT
     Route: 048
     Dates: start: 20150723
  2. TORSEMIDE. [Concomitant]
     Active Substance: TORSEMIDE
  3. CA CITRATE [Concomitant]
  4. TACROLIMUS. [Suspect]
     Active Substance: TACROLIMUS
     Indication: RENAL TRANSPLANT
     Route: 048
     Dates: start: 20150723
  5. PREDINSONE [Concomitant]
  6. SIMVASTATIN. [Concomitant]
     Active Substance: SIMVASTATIN
  7. WARFARIN [Concomitant]
     Active Substance: WARFARIN
  8. NOVOLOG [Concomitant]
     Active Substance: INSULIN ASPART
  9. MOVANTIK [Concomitant]
     Active Substance: NALOXEGOL OXALATE
  10. CONTOUR [Concomitant]
  11. DAILY MULTI TAB [Concomitant]

REACTIONS (2)
  - Kidney infection [None]
  - Cystitis [None]
